FAERS Safety Report 18941960 (Version 1)
Quarter: 2021Q1

REPORT INFORMATION
  Report Type: Spontaneous
  Country: CA (occurrence: CA)
  Receive Date: 20210225
  Receipt Date: 20210225
  Transmission Date: 20210420
  Serious: Yes (Life-Threatening, Other)
  Sender: FDA-Public Use
  Company Number: CA-009507513-2102CAN007906

PATIENT
  Age: 66 Year
  Sex: Male
  Weight: 55 kg

DRUGS (9)
  1. CLOPIDOGREL [Concomitant]
     Active Substance: CLOPIDOGREL BISULFATE
  2. ROSUVASTATIN. [Concomitant]
     Active Substance: ROSUVASTATIN
  3. BISOPROLOL [Concomitant]
     Active Substance: BISOPROLOL
  4. FERROUS FUMARATE [Concomitant]
     Active Substance: FERROUS FUMARATE
     Dosage: DOSAGE FORM: NOT SPECIFIED
  5. MAGNESIUM OXIDE. [Concomitant]
     Active Substance: MAGNESIUM OXIDE
     Dosage: DOSAGE FORM: NOT SPECIFIED
  6. PIFELTRO [Suspect]
     Active Substance: DORAVIRINE
     Indication: HIV INFECTION
     Dosage: 100 MILLIGRAM, 1 EVERY 1 DAYS
     Route: 048
  7. BIKTARVY [Suspect]
     Active Substance: BICTEGRAVIR SODIUM\EMTRICITABINE\TENOFOVIR ALAFENAMIDE FUMARATE
     Indication: HIV INFECTION
     Dosage: 250 MILLIGRAM, 1 EVERY 1 DAYS
     Route: 048
  8. ASPIRIN. [Concomitant]
     Active Substance: ASPIRIN
     Dosage: DOSAGE FORM: NOT SPECIFIED
  9. PANTOPRAZOLE MAGNESIUM [Concomitant]
     Active Substance: PANTOPRAZOLE MAGNESIUM

REACTIONS (11)
  - Latent autoimmune diabetes in adults [Unknown]
  - Pollakiuria [Unknown]
  - Penile infection [Unknown]
  - Visual impairment [Unknown]
  - Weight decreased [Unknown]
  - Insulin resistance [Unknown]
  - Fatigue [Unknown]
  - Mucosal infection [Unknown]
  - Dizziness [Unknown]
  - Thirst [Unknown]
  - Type 1 diabetes mellitus [Unknown]
